FAERS Safety Report 6816985-X (Version None)
Quarter: 2010Q3

REPORT INFORMATION
  Report Type: 
  Country: None (occurrence: None)
  Receive Date: 20100706
  Receipt Date: 20100623
  Transmission Date: 20110219
  Serious: Yes (Other)
  Sender: FDA-Public Use
  Company Number: PHHY2010US14541

PATIENT
  Sex: Male
  Weight: 83.91 kg

DRUGS (2)
  1. EXJADE [Suspect]
     Indication: MYELODYSPLASTIC SYNDROME
     Dosage: 1000 MG/DAY
     Route: 048
  2. EXJADE [Suspect]
     Dosage: 1500 MG, DAILY
     Route: 048

REACTIONS (3)
  - DRUG INEFFECTIVE [None]
  - MACULAR HOLE [None]
  - RETINAL TEAR [None]
